FAERS Safety Report 18154288 (Version 7)
Quarter: 2021Q1

REPORT INFORMATION
  Report Type: Spontaneous
  Country: CA (occurrence: CA)
  Receive Date: 20200817
  Receipt Date: 20210312
  Transmission Date: 20210419
  Serious: Yes (Other)
  Sender: FDA-Public Use
  Company Number: CA-CELLTRION INC.-2018CA017981

PATIENT

DRUGS (46)
  1. INFLECTRA [Suspect]
     Active Substance: INFLIXIMAB-DYYB
     Dosage: 370 MG (EVERY 4 WEEKS)
     Route: 042
     Dates: start: 20180907, end: 20180907
  2. INFLECTRA [Suspect]
     Active Substance: INFLIXIMAB-DYYB
     Dosage: 370 MG,(EVERY 4 WEEKS)
     Route: 042
     Dates: start: 20181102, end: 20181102
  3. INFLECTRA [Suspect]
     Active Substance: INFLIXIMAB-DYYB
     Dosage: 370 MG,(EVERY 4 WEEKS)
     Route: 042
     Dates: start: 20190222, end: 20190222
  4. INFLECTRA [Suspect]
     Active Substance: INFLIXIMAB-DYYB
     Dosage: 370 MG,(EVERY 4 WEEKS)
     Route: 042
     Dates: start: 20200221, end: 20200221
  5. INFLECTRA [Suspect]
     Active Substance: INFLIXIMAB-DYYB
     Dosage: 370 MG, (EVERY 4 WEEKS)
     Route: 042
     Dates: start: 20210226
  6. PREDNISONE. [Concomitant]
     Active Substance: PREDNISONE
     Dosage: 50 MG, UNK (TAPERED DOSE IN 2009)
     Route: 065
     Dates: start: 2009
  7. COUMADIN [Concomitant]
     Active Substance: WARFARIN SODIUM
     Dosage: 10 MG, 3 TIMES PER WEEK
  8. HYDROCORTISONE. [Concomitant]
     Active Substance: HYDROCORTISONE
     Dosage: 100 MG
     Route: 042
     Dates: start: 20201006, end: 20201006
  9. INFLECTRA [Suspect]
     Active Substance: INFLIXIMAB-DYYB
     Indication: COLITIS ULCERATIVE
     Dosage: 5 MG/KG 0, 2, 6 WEEKS, THEN EVERY 8 WEEKS
     Route: 042
     Dates: start: 20171019, end: 20171019
  10. INFLECTRA [Suspect]
     Active Substance: INFLIXIMAB-DYYB
     Dosage: 5 MG/KG 0, 2, 6 WEEKS, THEN EVERY 8 WEEKS
     Route: 042
     Dates: start: 20171201, end: 20171201
  11. INFLECTRA [Suspect]
     Active Substance: INFLIXIMAB-DYYB
     Dosage: 370 MG,(EVERY 4 WEEKS)
     Route: 042
     Dates: start: 20200612, end: 20200612
  12. CORTIMENT [Concomitant]
     Dosage: 1 DF(TABLET), 1X/DAY
     Route: 048
     Dates: start: 201707
  13. HYDROCORTISONE. [Concomitant]
     Active Substance: HYDROCORTISONE
     Dosage: 100 MG
     Route: 042
     Dates: start: 20201030, end: 20201030
  14. INFLECTRA [Suspect]
     Active Substance: INFLIXIMAB-DYYB
     Dosage: 5 MG/KG, (EVERY 4 WEEKS)
     Route: 042
     Dates: start: 20180615, end: 20180807
  15. INFLECTRA [Suspect]
     Active Substance: INFLIXIMAB-DYYB
     Dosage: 370 MG, (EVERY 4 WEEKS)
     Route: 042
     Dates: start: 20200904, end: 20200904
  16. INFLECTRA [Suspect]
     Active Substance: INFLIXIMAB-DYYB
     Dosage: 370 MG, (EVERY 4 WEEKS)
     Route: 042
     Dates: start: 20201030
  17. BUDESONIDE. [Concomitant]
     Active Substance: BUDESONIDE
     Dosage: UNK
     Route: 065
     Dates: start: 201707
  18. INFLECTRA [Suspect]
     Active Substance: INFLIXIMAB-DYYB
     Dosage: 370 MG,(EVERY 4 WEEKS)
     Route: 042
     Dates: start: 20181130, end: 20181130
  19. INFLECTRA [Suspect]
     Active Substance: INFLIXIMAB-DYYB
     Dosage: 370 MG,(EVERY 4 WEEKS)
     Route: 042
     Dates: start: 20190125, end: 20190125
  20. INFLECTRA [Suspect]
     Active Substance: INFLIXIMAB-DYYB
     Dosage: 370 MG,(EVERY 4 WEEKS)
     Route: 042
     Dates: start: 20200124, end: 20200124
  21. INFLECTRA [Suspect]
     Active Substance: INFLIXIMAB-DYYB
     Dosage: 370 MG, (EVERY 4 WEEKS)
     Route: 042
     Dates: start: 20201202
  22. INFLECTRA [Suspect]
     Active Substance: INFLIXIMAB-DYYB
     Dosage: 370 MG, (EVERY 4 WEEKS)
     Route: 042
     Dates: start: 20210129
  23. INFLECTRA [Suspect]
     Active Substance: INFLIXIMAB-DYYB
     Dosage: 370 MG,(EVERY 4 WEEKS)
     Route: 042
     Dates: start: 20191004, end: 20191004
  24. ASACOL [Concomitant]
     Active Substance: MESALAMINE
     Dosage: 3 TABLETS 2X/DAY (4.8 G DAILY)
     Route: 065
     Dates: start: 201610
  25. HYDROCORTISONE. [Concomitant]
     Active Substance: HYDROCORTISONE
     Dosage: 100 MG, UNK
     Route: 042
     Dates: start: 20200221
  26. INFLECTRA [Suspect]
     Active Substance: INFLIXIMAB-DYYB
     Dosage: 5 MG/KG EVERY 0, 2, 6 WEEKS, THEN EVERY 8 WEEKS
     Route: 042
     Dates: start: 20180126, end: 20180126
  27. INFLECTRA [Suspect]
     Active Substance: INFLIXIMAB-DYYB
     Dosage: 4.7 MG/KG EVERY 4 WEEKS (NEW PRESCRIPTION)
     Route: 042
  28. INFLECTRA [Suspect]
     Active Substance: INFLIXIMAB-DYYB
     Dosage: 370 MG, (EVERY 4 WEEKS)
     Route: 042
     Dates: start: 20180226, end: 20180522
  29. INFLECTRA [Suspect]
     Active Substance: INFLIXIMAB-DYYB
     Dosage: 5 MG/KG, (EVERY 4 WEEKS)
     Route: 042
     Dates: start: 20180323, end: 20180323
  30. INFLECTRA [Suspect]
     Active Substance: INFLIXIMAB-DYYB
     Dosage: 370 MG (EVERY 4 WEEKS)
     Route: 042
     Dates: start: 20200710, end: 20200710
  31. INFLECTRA [Suspect]
     Active Substance: INFLIXIMAB-DYYB
     Dosage: 370 MG, (EVERY 4 WEEKS)
     Route: 042
     Dates: start: 20201006
  32. HYDROCORTISONE. [Concomitant]
     Active Substance: HYDROCORTISONE
     Indication: PREMEDICATION
     Dosage: 100 MG, UNK
     Route: 042
     Dates: start: 20190125
  33. HYDROCORTISONE. [Concomitant]
     Active Substance: HYDROCORTISONE
     Dosage: 100 MG
     Route: 042
     Dates: start: 20200612, end: 20200612
  34. INFLECTRA [Suspect]
     Active Substance: INFLIXIMAB-DYYB
     Dosage: 370 MG (EVERY 4 WEEKS)
     Route: 042
     Dates: start: 20181002, end: 20181002
  35. INFLECTRA [Suspect]
     Active Substance: INFLIXIMAB-DYYB
     Dosage: 370 MG,(EVERY 4 WEEKS)
     Route: 042
     Dates: start: 20190322, end: 20190322
  36. COUMADIN [Concomitant]
     Active Substance: WARFARIN SODIUM
     Dosage: 10 MG, 4 TIMES PER WEEK
  37. COUMADIN [Concomitant]
     Active Substance: WARFARIN SODIUM
     Dosage: 12.5 MG, 3 TIMES PER WEEK
  38. COUMADIN [Concomitant]
     Active Substance: WARFARIN SODIUM
     Dosage: 10 MG, 4 TIMES A WEEK
     Route: 065
  39. HYDROCORTISONE. [Concomitant]
     Active Substance: HYDROCORTISONE
     Dosage: 100 MG
     Route: 042
     Dates: start: 20200807, end: 20200807
  40. INFLECTRA [Suspect]
     Active Substance: INFLIXIMAB-DYYB
     Dosage: 370 MG,(EVERY 4 WEEKS)
     Route: 042
     Dates: start: 20181102, end: 20181102
  41. INFLECTRA [Suspect]
     Active Substance: INFLIXIMAB-DYYB
     Dosage: 370 MG,(EVERY 4 WEEKS)
     Route: 042
     Dates: start: 20190125, end: 20190125
  42. INFLECTRA [Suspect]
     Active Substance: INFLIXIMAB-DYYB
     Dosage: 370 MG,(EVERY 4 WEEKS)
     Route: 042
     Dates: start: 20190906, end: 20190906
  43. INFLECTRA [Suspect]
     Active Substance: INFLIXIMAB-DYYB
     Dosage: 370 MG,(EVERY 4 WEEKS)
     Route: 042
     Dates: start: 20191101, end: 20191101
  44. INFLECTRA [Suspect]
     Active Substance: INFLIXIMAB-DYYB
     Dosage: 370 MG (EVERY 4 WEEKS)
     Route: 042
     Dates: start: 20200807, end: 20200807
  45. COUMADIN [Concomitant]
     Active Substance: WARFARIN SODIUM
     Dosage: 7.5 MG, 4 TIMES PER WEEK
  46. HYDROCORTISONE. [Concomitant]
     Active Substance: HYDROCORTISONE
     Dosage: 100 MG
     Route: 042
     Dates: start: 20200710, end: 20200710

REACTIONS (11)
  - Drug level below therapeutic [Not Recovered/Not Resolved]
  - Off label use [Unknown]
  - Product use issue [Unknown]
  - Heart rate decreased [Unknown]
  - Condition aggravated [Recovered/Resolved]
  - Blood pressure diastolic decreased [Unknown]
  - Lower respiratory tract infection [Unknown]
  - Faecal calprotectin increased [Not Recovered/Not Resolved]
  - Hordeolum [Recovering/Resolving]
  - International normalised ratio decreased [Unknown]
  - Blood pressure fluctuation [Unknown]

NARRATIVE: CASE EVENT DATE: 201801
